FAERS Safety Report 17827134 (Version 2)
Quarter: 2020Q3

REPORT INFORMATION
  Report Type: Spontaneous
  Country: GB (occurrence: GB)
  Receive Date: 20200527
  Receipt Date: 20200703
  Transmission Date: 20201102
  Serious: Yes (Death, Hospitalization, Other)
  Sender: FDA-Public Use
  Company Number: GB-AUROBINDO-AUR-APL-2020-025477

PATIENT
  Age: 76 Year
  Sex: Female

DRUGS (1)
  1. PARACETAMOL TABLET [Suspect]
     Active Substance: ACETAMINOPHEN
     Indication: PAIN
     Dosage: UNKNOWN.
     Route: 048
     Dates: start: 20200222, end: 20200225

REACTIONS (7)
  - Metabolic acidosis [Unknown]
  - Hypophagia [Unknown]
  - Acute hepatic failure [Fatal]
  - Hypoglycaemia [Unknown]
  - Acute kidney injury [Unknown]
  - Jaundice [Unknown]
  - Hypotension [Unknown]

NARRATIVE: CASE EVENT DATE: 20200225
